FAERS Safety Report 16306475 (Version 2)
Quarter: 2019Q2

REPORT INFORMATION
  Report Type: Spontaneous
  Country: JP (occurrence: JP)
  Receive Date: 20190513
  Receipt Date: 20190523
  Transmission Date: 20190711
  Serious: Yes (Life-Threatening, Other)
  Sender: FDA-Public Use
  Company Number: JP-SA-2015SA095569

PATIENT
  Age: 48 Year
  Sex: Male
  Weight: 62 kg

DRUGS (9)
  1. ARTIST [Concomitant]
     Active Substance: CARVEDILOL
     Dosage: 2.5 MG,QD
     Route: 048
  2. RENAGEL [Suspect]
     Active Substance: SEVELAMER HYDROCHLORIDE
     Indication: SYSTEMIC LUPUS ERYTHEMATOSUS
     Dosage: 500 MG,TID
     Route: 048
     Dates: start: 20060503
  3. PREDNISOLONE. [Suspect]
     Active Substance: PREDNISOLONE
     Indication: SYSTEMIC LUPUS ERYTHEMATOSUS
     Dosage: 14 MG,QD
     Route: 048
  4. MARZULENE [SODIUM GUALENATE] [Concomitant]
     Dosage: 1.5 G, TID
     Route: 048
  5. PROCYLIN [Concomitant]
     Active Substance: BERAPROST SODIUM
     Dosage: 20 UG,TID
     Route: 048
  6. LAMISIL [Concomitant]
     Active Substance: TERBINAFINE HYDROCHLORIDE
     Dosage: 125 MG, QD
     Route: 048
  7. NEXIUM [Concomitant]
     Active Substance: ESOMEPRAZOLE MAGNESIUM
     Dosage: 20 MG,QD
     Route: 048
  8. REGPARA [Concomitant]
     Active Substance: CINACALCET HYDROCHLORIDE
     Dosage: 25 MG,QD
     Route: 048
  9. BAYASPIRIN [Concomitant]
     Active Substance: ASPIRIN
     Dosage: 100 MG,QD
     Route: 048

REACTIONS (7)
  - Large intestine perforation [Recovered/Resolved]
  - Crystal deposit intestine [Unknown]
  - Abdominal pain [Recovered/Resolved]
  - Pyrexia [Recovered/Resolved]
  - Shock [Recovered/Resolved]
  - Cataract [Recovered/Resolved]
  - Peritonitis [Recovered/Resolved]

NARRATIVE: CASE EVENT DATE: 20060901
